FAERS Safety Report 11633732 (Version 1)
Quarter: 2015Q4

REPORT INFORMATION
  Report Type: Spontaneous
  Country: US (occurrence: US)
  Receive Date: 20151015
  Receipt Date: 20151015
  Transmission Date: 20160304
  Serious: No
  Sender: FDA-Public Use
  Company Number: US-INDIVIOR-RB-73403-2014

PATIENT
  Age: 39 Year
  Sex: Male

DRUGS (1)
  1. SUBOXONE [Suspect]
     Active Substance: BUPRENORPHINE HYDROCHLORIDE\NALOXONE HYDROCHLORIDE
     Indication: DRUG DEPENDENCE
     Dosage: UNK, DAILY
     Route: 060

REACTIONS (8)
  - Product preparation error [Unknown]
  - Drug withdrawal syndrome [Unknown]
  - Myalgia [Unknown]
  - Substance abuse [Unknown]
  - Discomfort [Unknown]
  - Increased appetite [Unknown]
  - Asthenia [Unknown]
  - Drug dependence [Unknown]
